FAERS Safety Report 19880275 (Version 1)
Quarter: 2021Q3

REPORT INFORMATION
  Report Type: Spontaneous
  Country: BR (occurrence: BR)
  Receive Date: 20210925
  Receipt Date: 20210925
  Transmission Date: 20211014
  Serious: Yes (Other)
  Sender: FDA-Public Use
  Company Number: BR-TAKEDA-2021TUS058976

PATIENT
  Age: 11 Year
  Sex: Female
  Weight: 41 kg

DRUGS (2)
  1. VENVANSE [Suspect]
     Active Substance: LISDEXAMFETAMINE DIMESYLATE
     Indication: ATTENTION DEFICIT HYPERACTIVITY DISORDER
     Dosage: UNK
     Route: 065
  2. VENVANSE [Suspect]
     Active Substance: LISDEXAMFETAMINE DIMESYLATE
     Indication: OPPOSITIONAL DEFIANT DISORDER

REACTIONS (9)
  - Feeling of despair [Unknown]
  - Illness [Unknown]
  - Tic [Unknown]
  - Dizziness [Unknown]
  - Gait disturbance [Unknown]
  - Suicidal ideation [Unknown]
  - Cold sweat [Unknown]
  - Tremor [Recovered/Resolved]
  - Crying [Unknown]
